FAERS Safety Report 6280309-X (Version None)
Quarter: 2009Q3

REPORT INFORMATION
  Report Type: 
  Country: None (occurrence: None)
  Receive Date: 20090724
  Receipt Date: 20080123
  Transmission Date: 20100115
  Serious: Yes (Hospitalization, Other)
  Sender: FDA-Public Use
  Company Number: US-ASTRAZENECA-2007UW27428

PATIENT
  Age: 36 Year
  Sex: Male
  Weight: 72.6 kg

DRUGS (11)
  1. SEROQUEL [Suspect]
     Indication: BIPOLAR DISORDER
     Route: 048
     Dates: start: 20030101, end: 20060301
  2. SEROQUEL [Suspect]
     Dosage: DOSE-  25MG-400MG
     Route: 048
     Dates: start: 20040428
  3. PANCREASE [Concomitant]
  4. AMBIEN [Concomitant]
     Indication: SLEEP DISORDER
     Dosage: STRENGTH- 5MG, 10MG  DOSE- 5-10MG AT NIGHT AS REQUIRED
     Route: 048
  5. TOPAMAX [Concomitant]
     Route: 048
  6. RISPERDAL [Concomitant]
  7. DEPAKOTE [Concomitant]
  8. METRONIDAZOLE [Concomitant]
  9. NEXIUM [Concomitant]
  10. LOVENOX [Concomitant]
  11. PREVACID [Concomitant]

REACTIONS (4)
  - PANCREATITIS [None]
  - PANCREATITIS ACUTE [None]
  - PANCREATITIS CHRONIC [None]
  - PANCREATITIS RELAPSING [None]
